FAERS Safety Report 12889507 (Version 2)
Quarter: 2016Q4

REPORT INFORMATION
  Report Type: Report from Study
  Country: US (occurrence: US)
  Receive Date: 20161027
  Receipt Date: 20161122
  Transmission Date: 20170207
  Serious: Yes (Other)
  Sender: FDA-Public Use
  Company Number: US-BAYER-2016-188457

PATIENT
  Age: 52 Year
  Sex: Male

DRUGS (1)
  1. STIVARGA [Suspect]
     Active Substance: REGORAFENIB
     Indication: COLORECTAL CANCER
     Dosage: 120 MG, QD
     Route: 048
     Dates: start: 20160925

REACTIONS (9)
  - Blood urine present [None]
  - Angular cheilitis [None]
  - Dry skin [None]
  - Muscle spasms [None]
  - Fatigue [Recovering/Resolving]
  - Dysuria [None]
  - Colorectal cancer [None]
  - Oral herpes [None]
  - Oral pain [None]

NARRATIVE: CASE EVENT DATE: 2016
